FAERS Safety Report 6176597-0 (Version None)
Quarter: 2009Q2

REPORT INFORMATION
  Report Type: 
  Country: None (occurrence: None)
  Receive Date: 20090501
  Receipt Date: 20081013
  Transmission Date: 20091009
  Serious: Yes (Other)
  Sender: FDA-Public Use
  Company Number: FR-ALEXION-A200800283

PATIENT

DRUGS (2)
  1. SOLIRIS [Suspect]
     Indication: PAROXYSMAL NOCTURNAL HAEMOGLOBINURIA
     Dosage: UNK, Q2W
     Dates: end: 20080101
  2. SOLIRIS [Suspect]
     Dosage: UNK, QMONTH
     Dates: start: 20080101, end: 20080101

REACTIONS (1)
  - HAEMOLYSIS [None]
